FAERS Safety Report 5952821-1 (Version None)
Quarter: 2008Q4

REPORT INFORMATION
  Report Type: 
  Country: None (occurrence: None)
  Receive Date: 20081114
  Receipt Date: 20081107
  Transmission Date: 20090506
  Serious: Yes (Other)
  Sender: FDA-Public Use
  Company Number: US-ALLERGAN-0814235US

PATIENT
  Sex: Female

DRUGS (12)
  1. SANCTURA XR [Suspect]
     Indication: BLADDER DISORDER
     Dosage: 60 MG, QAM
     Route: 048
     Dates: end: 20081107
  2. SANCTURA XR [Suspect]
     Indication: URINARY TRACT DISORDER
     Dosage: 60 MG, QAM
     Route: 048
     Dates: start: 20081001, end: 20081001
  3. LEVOTHYROXINE SODIUM [Concomitant]
     Dosage: 0.75 MG, QAM
  4. PANTOPRAZOLE SODIUM [Concomitant]
     Dosage: 40 MG, BID
  5. COZAAR [Concomitant]
     Dosage: 50 MG, QAM
  6. LORATADINE [Concomitant]
     Dosage: 10 MG, QHS
  7. XALATAN [Concomitant]
     Indication: GLAUCOMA
  8. NIASPAN [Concomitant]
     Dosage: 1000 MG, UNK
  9. HYDROCODONE [Concomitant]
     Dosage: HALF
  10. ASMANEX TWISTHALER [Concomitant]
     Route: 055
  11. ALBUTEROL [Concomitant]
     Dosage: UNK, QHS
     Route: 055
  12. BIPAP EQUIPMENT [Concomitant]
     Indication: SLEEP APNOEA SYNDROME

REACTIONS (5)
  - BLOOD PRESSURE INCREASED [None]
  - CHEST PAIN [None]
  - DEHYDRATION [None]
  - HEART RATE INCREASED [None]
  - PRODUCTIVE COUGH [None]
